FAERS Safety Report 6777808-0 (Version None)
Quarter: 2010Q2

REPORT INFORMATION
  Report Type: 
  Country: None (occurrence: None)
  Receive Date: 20100618
  Receipt Date: 20100603
  Transmission Date: 20101027
  Serious: Yes (Death)
  Sender: FDA-Public Use
  Company Number: IT-MYLANLABS-2010S1009772

PATIENT
  Age: 7 Day
  Sex: Male

DRUGS (5)
  1. LAMIVUDINE [Suspect]
     Route: 048
  2. ZIDOVUDINE [Suspect]
     Route: 042
  3. DUOCID                             /00892601/ [Concomitant]
     Indication: CHORIOAMNIONITIS
     Route: 065
  4. CLARITHROMYCIN [Concomitant]
     Indication: CHORIOAMNIONITIS
     Route: 065
  5. AMIKACIN [Concomitant]
     Indication: CHORIOAMNIONITIS
     Route: 065

REACTIONS (1)
  - NECROTISING COLITIS [None]
